FAERS Safety Report 4956321-7 (Version None)
Quarter: 2006Q1

REPORT INFORMATION
  Report Type: 
  Country: None (occurrence: None)
  Receive Date: 20060323
  Receipt Date: 20060310
  Transmission Date: 20060701
  Serious: Yes (Hospitalization)
  Sender: FDA-Public Use
  Company Number: 2006034793

PATIENT
  Age: 52 Year
  Sex: Female
  Weight: 40 kg

DRUGS (1)
  1. SULPERAZON (SULBACTAM, CEFOPERAZONE) [Suspect]
     Indication: CHOLANGITIS
     Dosage: 1 GRAM (1 IN 1 D), INTRAVENOUS
     Route: 042
     Dates: start: 20040922

REACTIONS (1)
  - ANAPHYLACTIC SHOCK [None]
